FAERS Safety Report 9506104 (Version 1)
Quarter: 2013Q1

REPORT INFORMATION
  Report Type: Spontaneous
  Country: US (occurrence: None)
  Receive Date: 20130305
  Receipt Date: 20130305
  Transmission Date: 20140127
  Serious: No
  Sender: FDA-Public Use
  Company Number: 1000039610

PATIENT
  Age: 74 Year
  Sex: Male

DRUGS (6)
  1. DALIRESP (ROFLUMILAST) (500 MICROGRAM, TABLETS) [Suspect]
     Indication: CHRONIC OBSTRUCTIVE PULMONARY DISEASE
     Dosage: ( 500 MCG, 1 IN 1 D), ORAL
     Route: 048
     Dates: start: 201209, end: 20121017
  2. LASIX (FUROSEMIDE) (FUROSEMIDE) [Concomitant]
  3. DIOVAN (VALSARTAN) (VALSARTAN) [Concomitant]
  4. SPIRIVA (TIOTROPIUM BROMIDE) (TIOTROPIUM BROMIDE) [Concomitant]
  5. REVATIO (SILDENAFIL CITRATE) (SILDENAFIL CITRATE) [Concomitant]
  6. ALLOPURINOL (ALLOPURINOL) (ALLOPURINOL) [Concomitant]

REACTIONS (4)
  - Weight decreased [None]
  - Nausea [None]
  - Headache [None]
  - Influenza like illness [None]
